FAERS Safety Report 4530771-5 (Version None)
Quarter: 2004Q4

REPORT INFORMATION
  Report Type: 
  Country: None (occurrence: None)
  Receive Date: 20041129
  Receipt Date: 20040603
  Transmission Date: 20050328
  Serious: Yes (Hospitalization, Other)
  Sender: FDA-Public Use
  Company Number: USA040668894

PATIENT
  Age: 55 Year
  Sex: Female

DRUGS (4)
  1. ZYPREXA [Suspect]
     Indication: DEMENTIA
     Dosage: 15 MG DAY
     Dates: start: 20040201
  2. ZYPREXA [Suspect]
     Indication: PSYCHOTIC DISORDER
     Dosage: 15 MG DAY
     Dates: start: 20040201
  3. BLOOD PRESSURE MEDICATIONS [Concomitant]
  4. ZOLOFT [Concomitant]

REACTIONS (2)
  - DEHYDRATION [None]
  - NEUROLEPTIC MALIGNANT SYNDROME [None]
